FAERS Safety Report 20078687 (Version 1)
Quarter: 2021Q4

REPORT INFORMATION
  Report Type: Other
  Country: CN (occurrence: CN)
  Receive Date: 20211117
  Receipt Date: 20211117
  Transmission Date: 20220303
  Serious: Yes (Hospitalization, Other)
  Sender: FDA-Public Use
  Company Number: CN-002147023-NVSC2020CN322834

PATIENT
  Age: 33 Year
  Sex: Female
  Weight: 57 kg

DRUGS (9)
  1. OMALIZUMAB [Suspect]
     Active Substance: OMALIZUMAB
     Indication: Asthma
     Route: 058
     Dates: start: 20200825, end: 20210202
  2. OMALIZUMAB [Suspect]
     Active Substance: OMALIZUMAB
     Route: 058
     Dates: start: 20201006
  3. OMALIZUMAB [Suspect]
     Active Substance: OMALIZUMAB
     Route: 058
     Dates: start: 20201120
  4. LEVOFLOXACIN [Concomitant]
     Active Substance: LEVOFLOXACIN
     Dosage: UNK (FOR ONE WEEK)
     Route: 065
  5. SYMBICORT [Concomitant]
     Active Substance: BUDESONIDE\FORMOTEROL FUMARATE DIHYDRATE
     Dosage: 329 UG, BID (320/9,2 INHALATION/ TIME
     Route: 055
  6. CEFTRIAXONE [Concomitant]
     Active Substance: CEFTRIAXONE
     Indication: Inflammation
     Route: 041
     Dates: start: 20201201, end: 20201209
  7. OMEPRAZOLE [Concomitant]
     Active Substance: OMEPRAZOLE
     Indication: Ectopic gastric mucosa
     Route: 048
     Dates: start: 20201201, end: 20201208
  8. CALCITRIOL [Concomitant]
     Active Substance: CALCITRIOL
     Indication: Mineral supplementation
     Route: 048
     Dates: start: 20201201, end: 20201209
  9. CALCIUM CARBONATE [Concomitant]
     Active Substance: CALCIUM CARBONATE
     Indication: Mineral supplementation
     Route: 048
     Dates: start: 20201201, end: 20201209

REACTIONS (10)
  - Asthma [Recovering/Resolving]
  - Type I hypersensitivity [Unknown]
  - Cough [Unknown]
  - Sneezing [Unknown]
  - Wheezing [Not Recovered/Not Resolved]
  - Anaphylactic reaction [Unknown]
  - Anaphylactoid reaction [Unknown]
  - Rhinitis [Not Recovered/Not Resolved]
  - Upper respiratory tract infection [Not Recovered/Not Resolved]
  - Urticaria [Not Recovered/Not Resolved]

NARRATIVE: CASE EVENT DATE: 20201115
